FAERS Safety Report 19703903 (Version 1)
Quarter: 2021Q3

REPORT INFORMATION
  Report Type: Spontaneous
  Country: US (occurrence: US)
  Receive Date: 20210813
  Receipt Date: 20210813
  Transmission Date: 20211014
  Serious: Yes (Other)
  Sender: FDA-Public Use
  Company Number: None

PATIENT
  Age: 74 Year
  Sex: Female

DRUGS (13)
  1. SHINGRIX [Concomitant]
     Active Substance: RECOMBINANT VARICELLA ZOSTER VIRUS (VZV) GLYCOPROTEIN E
     Dates: start: 20210425
  2. IBANDRONATE 150MG [Concomitant]
     Active Substance: IBANDRONATE SODIUM
  3. TRIAMCINOLONE 0.1% CREAM [Concomitant]
     Active Substance: TRIAMCINOLONE ACETONIDE
  4. CLOBETASOL PROPIONATE CREAM 0.05% [Concomitant]
     Active Substance: CLOBETASOL PROPIONATE
  5. MUPIROCIN 2% OINTMENT [Concomitant]
     Active Substance: MUPIROCIN
  6. AMOXICILLIN 875MG [Concomitant]
     Active Substance: AMOXICILLIN
  7. LEVOTHYROXINE 75MCG [Concomitant]
     Active Substance: LEVOTHYROXINE
  8. PREDNISONE 10MG [Concomitant]
     Active Substance: PREDNISONE
  9. TRAMADOL 50MG [Concomitant]
     Active Substance: TRAMADOL
  10. FORTEO [Suspect]
     Active Substance: TERIPARATIDE
     Indication: OSTEOPOROSIS
     Route: 058
  11. CHLORHEXIDINE ORAL RINSE [Concomitant]
  12. FLUOXETINE 10MG CAPSULES [Concomitant]
     Active Substance: FLUOXETINE HYDROCHLORIDE
  13. ROSUVASTATIN 20MG [Concomitant]
     Active Substance: ROSUVASTATIN

REACTIONS (3)
  - Pain in extremity [None]
  - Decreased appetite [None]
  - Weight decreased [None]

NARRATIVE: CASE EVENT DATE: 20210528
